FAERS Safety Report 9068217 (Version 1)
Quarter: 2013Q1

REPORT INFORMATION
  Report Type: Spontaneous
  Country: US (occurrence: US)
  Receive Date: 20130128
  Receipt Date: 20130128
  Transmission Date: 20140127
  Serious: Yes (Other)
  Sender: FDA-Public Use
  Company Number: US-ASTRAZENECA-2013SE04159

PATIENT
  Age: 63 Year
  Sex: Male
  Weight: 78.5 kg

DRUGS (7)
  1. BRILINTA [Suspect]
     Indication: MYOCARDIAL INFARCTION
     Route: 048
     Dates: start: 2012
  2. BRILINTA [Suspect]
     Indication: MYOCARDIAL INFARCTION
     Route: 048
     Dates: start: 201301
  3. PLAVIX [Suspect]
     Route: 065
  4. BENICAR [Concomitant]
     Indication: HYPERTENSION
     Dates: start: 201301
  5. WARFARIN [Concomitant]
  6. CARVEDILOL [Concomitant]
  7. LIPITOR [Concomitant]
     Indication: BLOOD CHOLESTEROL INCREASED

REACTIONS (2)
  - Myocardial infarction [Unknown]
  - Intentional drug misuse [Unknown]
